FAERS Safety Report 24550662 (Version 1)
Quarter: 2024Q4

REPORT INFORMATION
  Report Type: Report from Study
  Country: PH (occurrence: PH)
  Receive Date: 20241025
  Receipt Date: 20241025
  Transmission Date: 20250115
  Serious: Yes (Death)
  Sender: OTSUKA
  Company Number: PH-OTSUKA-2024_018665

PATIENT
  Sex: Male

DRUGS (2)
  1. TOLVAPTAN [Suspect]
     Active Substance: TOLVAPTAN
     Indication: Oedema
     Dosage: 0.5 DF, QOD (15MG 1/2 TABLET EVERY OTHER DAY)
     Route: 048
     Dates: start: 202407
  2. TOLVAPTAN [Suspect]
     Active Substance: TOLVAPTAN
     Dosage: 0.5 DF, TIW (15MG 1/2 TABLET IN MORNING EVERY MONDAY, WEDNESDAY, AND FRIDAY)
     Route: 065

REACTIONS (4)
  - Cardiac failure [Fatal]
  - Inappropriate schedule of product administration [Unknown]
  - Wrong technique in product usage process [Unknown]
  - Underdose [Unknown]
